FAERS Safety Report 19191538 (Version 1)
Quarter: 2021Q2

REPORT INFORMATION
  Report Type: Spontaneous
  Country: US (occurrence: US)
  Receive Date: 20210429
  Receipt Date: 20210429
  Transmission Date: 20210717
  Serious: Yes (Hospitalization, Other)
  Sender: FDA-Public Use
  Company Number: US-HIKMA PHARMACEUTICALS USA INC.-US-H14001-21-02074

PATIENT
  Age: 10 Year
  Sex: Male
  Weight: 29.1 kg

DRUGS (9)
  1. CYTARABINE. [Suspect]
     Active Substance: CYTARABINE
     Indication: ACUTE LYMPHOCYTIC LEUKAEMIA
     Dosage: (DAYS 1?4, 8?11, 29?32, 36?39)
     Route: 042
     Dates: start: 20170503
  2. MERCAPTOPURINE. [Suspect]
     Active Substance: MERCAPTOPURINE
     Indication: ACUTE LYMPHOCYTIC LEUKAEMIA
     Route: 048
     Dates: start: 20170303
  3. INCB018424 [Suspect]
     Active Substance: RUXOLITINIB
     Indication: ACUTE LYMPHOCYTIC LEUKAEMIA
     Route: 048
     Dates: start: 20170303, end: 20170505
  4. CYCLOPHOSPHAMIDE. [Suspect]
     Active Substance: CYCLOPHOSPHAMIDE
     Indication: ACUTE LYMPHOCYTIC LEUKAEMIA
     Dosage: (D 1, 29)
     Route: 042
     Dates: start: 20170303
  5. VINCRISTINE [Suspect]
     Active Substance: VINCRISTINE
     Indication: ACUTE LYMPHOCYTIC LEUKAEMIA
     Dosage: (DAYS 15, 22, 43)
     Route: 042
     Dates: start: 20170317
  6. MERCAPTOPURINE. [Suspect]
     Active Substance: MERCAPTOPURINE
     Route: 048
     Dates: start: 20170303
  7. INCB018424 [Suspect]
     Active Substance: RUXOLITINIB
     Dosage: UNKNOWN
     Route: 048
     Dates: start: 20170505
  8. PEGASPARGASE [Suspect]
     Active Substance: PEGASPARGASE
     Indication: ACUTE LYMPHOCYTIC LEUKAEMIA
     Dosage: (DAYS 15, 43)
     Route: 042
     Dates: start: 20170317
  9. METHOTREXATE. [Suspect]
     Active Substance: METHOTREXATE
     Indication: ACUTE LYMPHOCYTIC LEUKAEMIA
     Dosage: (DAYS 1, 8, 15, 22)
     Route: 037
     Dates: start: 20170303

REACTIONS (16)
  - Decreased appetite [Unknown]
  - Lower respiratory tract infection fungal [Recovered/Resolved]
  - Skin lesion [Unknown]
  - Anaemia [Recovered/Resolved]
  - Enterovirus infection [Unknown]
  - Pain in extremity [Recovered/Resolved]
  - Abdominal pain [Recovered/Resolved]
  - Hypertension [Recovered/Resolved]
  - Lipase increased [Unknown]
  - Febrile neutropenia [Unknown]
  - Thrombocytopenia [Recovered/Resolved]
  - Upper respiratory tract infection [Recovered/Resolved]
  - Hypoalbuminaemia [Unknown]
  - Rhinovirus infection [Unknown]
  - Hypotension [Unknown]
  - Pancreatitis [Recovered/Resolved]

NARRATIVE: CASE EVENT DATE: 20170421
